FAERS Safety Report 4392207-7 (Version None)
Quarter: 2004Q3

REPORT INFORMATION
  Report Type: 
  Country: None (occurrence: None)
  Receive Date: 20040702
  Receipt Date: 20040622
  Transmission Date: 20050211
  Serious: Yes (Hospitalization, Other)
  Sender: FDA-Public Use
  Company Number: 163-20785-04060650

PATIENT
  Age: 70 Year
  Sex: Male

DRUGS (5)
  1. THALOMID [Suspect]
     Indication: MULTIPLE MYELOMA
     Dosage: SEE IMAGE
     Route: 048
     Dates: start: 20030201, end: 20030801
  2. THALOMID [Suspect]
     Indication: MULTIPLE MYELOMA
     Dosage: SEE IMAGE
     Route: 048
     Dates: start: 20040625
  3. DECADRON [Suspect]
     Indication: MULTIPLE MYELOMA
     Dates: start: 20030201
  4. COUMADIN [Concomitant]
  5. PAXIL (PAROXETINE HYDROCLORIDE) [Concomitant]

REACTIONS (8)
  - COLOSTOMY [None]
  - DIVERTICULITIS [None]
  - DRUG INEFFECTIVE [None]
  - GASTROINTESTINAL DISORDER [None]
  - IMPAIRED HEALING [None]
  - NEUROPATHY PERIPHERAL [None]
  - STEM CELL TRANSPLANT [None]
  - THROMBOSIS [None]
